FAERS Safety Report 25406591 (Version 1)
Quarter: 2025Q2

REPORT INFORMATION
  Report Type: Spontaneous
  Country: CN (occurrence: CN)
  Receive Date: 20250606
  Receipt Date: 20250606
  Transmission Date: 20250717
  Serious: Yes (Life-Threatening, Hospitalization, Other)
  Sender: GENUS LIFESCIENCES
  Company Number: CN-Genus_Lifesciences-USA-ALL0580202500128

PATIENT
  Age: 59 Year
  Sex: Male

DRUGS (4)
  1. ASPIRIN\CARISOPRODOL [Suspect]
     Active Substance: ASPIRIN\CARISOPRODOL
     Indication: Cerebrovascular accident
     Route: 048
     Dates: start: 2023, end: 2025
  2. LENVATINIB [Suspect]
     Active Substance: LENVATINIB
     Indication: Pain
     Dates: start: 2025, end: 2025
  3. TRAMADOL [Concomitant]
     Active Substance: TRAMADOL
     Indication: Pain
     Dates: start: 2025
  4. AMLODIPINE [Concomitant]
     Active Substance: AMLODIPINE BESYLATE
     Indication: Hypertension
     Dates: start: 2025

REACTIONS (9)
  - Aortic dissection [Recovering/Resolving]
  - Drug interaction [Recovering/Resolving]
  - Hypertension [Recovering/Resolving]
  - Post angioplasty restenosis [Recovering/Resolving]
  - Hepatocellular carcinoma [Recovering/Resolving]
  - Hepatitis C [Recovering/Resolving]
  - Mesenteric artery thrombosis [Recovering/Resolving]
  - Peripheral artery thrombosis [Recovering/Resolving]
  - Coeliac artery stenosis [Recovering/Resolving]

NARRATIVE: CASE EVENT DATE: 20250101
